FAERS Safety Report 5835523-1 (Version None)
Quarter: 2008Q3

REPORT INFORMATION
  Report Type: 
  Country: None (occurrence: None)
  Receive Date: 20080806
  Receipt Date: 20080731
  Transmission Date: 20090109
  Serious: Yes (Life-Threatening, Other)
  Sender: FDA-Public Use
  Company Number: A0740500A

PATIENT
  Age: 50 Year
  Sex: Female

DRUGS (3)
  1. TREXIMET [Suspect]
     Indication: MIGRAINE
     Dosage: 1TAB AS REQUIRED
     Route: 048
     Dates: start: 20080701, end: 20080701
  2. EFFEXOR [Concomitant]
  3. SEROQUEL [Concomitant]

REACTIONS (1)
  - ANAPHYLACTIC SHOCK [None]
